FAERS Safety Report 4320967-X (Version None)
Quarter: 2004Q1

REPORT INFORMATION
  Report Type: 
  Country: None (occurrence: None)
  Receive Date: 20040322
  Receipt Date: 20040322
  Transmission Date: 20041129
  Serious: Yes (Life-Threatening, Hospitalization, Other)
  Sender: FDA-Public Use
  Company Number: None

PATIENT
  Age: 14 Year
  Sex: Female
  Weight: 54.4316 kg

DRUGS (3)
  1. ZOLOFT [Suspect]
     Indication: ANXIETY
     Dosage: 50, 100, ONCE DAILY ORAL
     Route: 048
     Dates: start: 20000901, end: 20030501
  2. PAXIL CR [Suspect]
     Indication: ANXIETY
     Dosage: 10,25 , 37.5 ONCE DAILY ORAL
     Route: 048
     Dates: start: 20010101, end: 20031101
  3. CLARITIN [Concomitant]

REACTIONS (11)
  - ABDOMINAL PAIN UPPER [None]
  - AGGRESSION [None]
  - ALCOHOL USE [None]
  - ANGER [None]
  - DEPRESSION [None]
  - DYSKINESIA [None]
  - JUDGEMENT IMPAIRED [None]
  - MENTAL DISORDER [None]
  - PSYCHOTIC DISORDER [None]
  - SEXUAL ASSAULT VICTIM [None]
  - SUICIDE ATTEMPT [None]
